FAERS Safety Report 13014075 (Version 2)
Quarter: 2016Q4

REPORT INFORMATION
  Report Type: Spontaneous
  Country: FR (occurrence: FR)
  Receive Date: 20161209
  Receipt Date: 20161226
  Transmission Date: 20170207
  Serious: Yes (Other)
  Sender: FDA-Public Use
  Company Number: FR-UCBSA-2016046476

PATIENT
  Sex: Male
  Weight: 45 kg

DRUGS (1)
  1. METHYLPHENIDATE HYDROCHLORIDE. [Suspect]
     Active Substance: METHYLPHENIDATE HYDROCHLORIDE
     Indication: PRODUCT USED FOR UNKNOWN INDICATION
     Dosage: UNK
     Route: 048
     Dates: start: 20160718, end: 20161018

REACTIONS (2)
  - Abnormal behaviour [Recovered/Resolved]
  - Tic [Recovering/Resolving]

NARRATIVE: CASE EVENT DATE: 201607
